FAERS Safety Report 11390752 (Version 1)
Quarter: 2015Q3

REPORT INFORMATION
  Report Type: Spontaneous
  Country: US (occurrence: US)
  Receive Date: 20150818
  Receipt Date: 20150818
  Transmission Date: 20151125
  Serious: No
  Sender: FDA-Public Use
  Company Number: US-ROCHE-1390616

PATIENT
  Sex: Male

DRUGS (3)
  1. PEGASYS [Suspect]
     Active Substance: PEGINTERFERON ALFA-2A
     Indication: CHRONIC HEPATITIS C
     Route: 065
     Dates: start: 20140410
  2. RIBASPHERE [Suspect]
     Active Substance: RIBAVIRIN
     Indication: CHRONIC HEPATITIS C
     Route: 065
     Dates: start: 20140410
  3. SOFOSBUVIR [Suspect]
     Active Substance: SOFOSBUVIR
     Indication: CHRONIC HEPATITIS C
     Route: 065
     Dates: start: 20140410

REACTIONS (4)
  - Tremor [Unknown]
  - Influenza like illness [Recovered/Resolved]
  - Dyspnoea [Unknown]
  - Fatigue [Unknown]
